FAERS Safety Report 11803310 (Version 1)
Quarter: 2015Q4

REPORT INFORMATION
  Report Type: Spontaneous
  Country: IT (occurrence: IT)
  Receive Date: 20151204
  Receipt Date: 20151204
  Transmission Date: 20160305
  Serious: Yes (Hospitalization)
  Sender: FDA-Public Use
  Company Number: IT-009507513-1511ITA015699

PATIENT
  Age: 61 Year
  Sex: Male

DRUGS (8)
  1. PROGLICEM [Suspect]
     Active Substance: DIAZOXIDE
     Indication: HYPOGLYCAEMIA
     Dosage: 300 UNK, UNK
     Dates: start: 20151109, end: 20151110
  2. ANTRA (OMEPRAZOLE) [Concomitant]
     Active Substance: OMEPRAZOLE
     Dosage: GASTROINTESTINAL HARD CAPSULE
     Route: 048
     Dates: start: 20151017, end: 20151116
  3. CLEXANE (ENOXAPARIN SODIUM) [Concomitant]
     Active Substance: ENOXAPARIN SODIUM
     Dosage: UNK
     Route: 058
     Dates: start: 20151029, end: 20151105
  4. CARDIOASPIRIN [Concomitant]
     Active Substance: ASPIRIN
     Dosage: GASTRORESISTANT TABLET
     Route: 048
     Dates: start: 20151017, end: 20151116
  5. COUMADIN [Concomitant]
     Active Substance: WARFARIN SODIUM
     Dosage: UNK
     Route: 048
     Dates: start: 20151101, end: 20151116
  6. TORVAST [Suspect]
     Active Substance: ATORVASTATIN
     Dosage: UNK
     Dates: start: 20151017, end: 20151116
  7. PROGLICEM [Suspect]
     Active Substance: DIAZOXIDE
     Dosage: 250 UNK, UNK
     Dates: start: 20151108, end: 20151108
  8. PROGLICEM [Suspect]
     Active Substance: DIAZOXIDE
     Dosage: 75 MG, UNK
     Route: 048
     Dates: start: 20151106, end: 20151107

REACTIONS (2)
  - Prothrombin time prolonged [Recovered/Resolved with Sequelae]
  - Liver injury [Recovered/Resolved with Sequelae]

NARRATIVE: CASE EVENT DATE: 20151109
